FAERS Safety Report 18706791 (Version 1)
Quarter: 2021Q1

REPORT INFORMATION
  Report Type: Spontaneous
  Country: NO (occurrence: NO)
  Receive Date: 20210106
  Receipt Date: 20210106
  Transmission Date: 20210419
  Serious: Yes (Other)
  Sender: FDA-Public Use
  Company Number: NO-EMD SERONO-9195051

PATIENT
  Age: 37 Year
  Sex: Female
  Weight: 76 kg

DRUGS (2)
  1. MAVENCLAD [Suspect]
     Active Substance: CLADRIBINE
     Dosage: SECOND TREATMENT WEEK. TOOK 7 TABLETS
     Dates: start: 20200929
  2. MAVENCLAD [Suspect]
     Active Substance: CLADRIBINE
     Indication: MULTIPLE SCLEROSIS
     Dosage: FIRST TREATMENT WEEK. TOOK 7 TABLETS
     Dates: start: 20200901

REACTIONS (3)
  - Lymphocyte count decreased [Unknown]
  - Retinal vein occlusion [Recovering/Resolving]
  - Papillophlebitis [Recovering/Resolving]

NARRATIVE: CASE EVENT DATE: 20200923
